FAERS Safety Report 13837837 (Version 5)
Quarter: 2018Q2

REPORT INFORMATION
  Report Type: Report from Study
  Country: US (occurrence: US)
  Receive Date: 20170806
  Receipt Date: 20180611
  Transmission Date: 20180711
  Serious: Yes (Other)
  Sender: FDA-Public Use
  Company Number: PHEH2017US024503

PATIENT
  Age: 26 Year
  Sex: Female
  Weight: 58.5 kg

DRUGS (5)
  1. GILENYA [Suspect]
     Active Substance: FINGOLIMOD HYDROCHLORIDE
     Indication: MULTIPLE SCLEROSIS
     Dosage: 0.5 MG, QD
     Route: 048
     Dates: start: 2013, end: 20170802
  2. FERRALET [Concomitant]
     Indication: HAEMOGLOBIN DECREASED
     Dosage: 1 DF, QD
     Route: 065
     Dates: start: 20180117
  3. ZOFRAN [Concomitant]
     Active Substance: ONDANSETRON HYDROCHLORIDE
     Indication: NAUSEA
     Dosage: 1-4 TABLETS, QD
     Route: 065
     Dates: start: 20180206
  4. TRAZOL [Concomitant]
     Indication: FUNGAL INFECTION
     Dosage: 1 DF (APPLICATION), QD
     Route: 065
     Dates: start: 20170810
  5. ZOFRAN [Concomitant]
     Active Substance: ONDANSETRON HYDROCHLORIDE
     Indication: VOMITING

REACTIONS (2)
  - Haemorrhage in pregnancy [Unknown]
  - Maternal exposure during pregnancy [Unknown]

NARRATIVE: CASE EVENT DATE: 201708
